FAERS Safety Report 5043970-3 (Version None)
Quarter: 2006Q3

REPORT INFORMATION
  Report Type: 
  Country: None (occurrence: None)
  Receive Date: 20060706
  Receipt Date: 20060511
  Transmission Date: 20061208
  Serious: Yes (Death, Hospitalization, Other)
  Sender: FDA-Public Use
  Company Number: 2006UW09363

PATIENT
  Age: 9 Year
  Sex: Male
  Weight: 31.8 kg

DRUGS (6)
  1. SEROQUEL [Suspect]
     Indication: AFFECTIVE DISORDER
     Dosage: 1/2-1
     Route: 048
     Dates: start: 20060117, end: 20060401
  2. SEROQUEL [Suspect]
     Indication: SLEEP DISORDER
     Dosage: 1/2-1
     Route: 048
     Dates: start: 20060117, end: 20060401
  3. ADDERALL XL [Concomitant]
     Indication: ATTENTION DEFICIT/HYPERACTIVITY DISORDER
     Route: 048
     Dates: start: 20021231, end: 20060401
  4. GUAIFENESIN [Concomitant]
  5. XANAX [Concomitant]
  6. TENEX [Concomitant]
     Indication: TIC
     Route: 048
     Dates: start: 20021221, end: 20060401

REACTIONS (23)
  - ABNORMAL BEHAVIOUR [None]
  - AGGRESSION [None]
  - BLOOD POTASSIUM DECREASED [None]
  - BLOOD PRESSURE SYSTOLIC INCREASED [None]
  - BODY TEMPERATURE DECREASED [None]
  - BRAIN DEATH [None]
  - BRAIN STEM SYNDROME [None]
  - CEREBELLAR INFARCTION [None]
  - CONFUSIONAL STATE [None]
  - DEPRESSED LEVEL OF CONSCIOUSNESS [None]
  - DIABETES INSIPIDUS [None]
  - DYSARTHRIA [None]
  - GASTROENTERITIS [None]
  - HEADACHE [None]
  - HYPONATRAEMIA [None]
  - HYPOTENSION [None]
  - INTRACRANIAL PRESSURE INCREASED [None]
  - LOSS OF CONSCIOUSNESS [None]
  - MEMORY IMPAIRMENT [None]
  - MYDRIASIS [None]
  - PNEUMOTHORAX [None]
  - TIC [None]
  - WATER INTOXICATION [None]
